FAERS Safety Report 10506653 (Version 1)
Quarter: 2014Q4

REPORT INFORMATION
  Report Type: Spontaneous
  Country: GB (occurrence: None)
  Receive Date: 20141007
  Receipt Date: 20141007
  Transmission Date: 20150528
  Serious: Yes (Hospitalization)
  Sender: FDA-Public Use
  Company Number: 2014045497

PATIENT
  Sex: Male

DRUGS (2)
  1. DESMOPRESSIN ACETATE. [Suspect]
     Active Substance: DESMOPRESSIN ACETATE
     Indication: DIABETES INSIPIDUS
     Dosage: NASAL
  2. DDAVP [Suspect]
     Active Substance: DESMOPRESSIN ACETATE
     Indication: DIABETES INSIPIDUS
     Dosage: 2 TABLETS IN TWO OUNCES FLUID ORAL
     Route: 048

REACTIONS (5)
  - Unevaluable event [None]
  - Seizure [None]
  - Fatigue [None]
  - Rash [None]
  - Photophobia [None]
